FAERS Safety Report 4744245-X (Version None)
Quarter: 2005Q3

REPORT INFORMATION
  Report Type: 
  Country: None (occurrence: None)
  Receive Date: 20050811
  Receipt Date: 20050811
  Transmission Date: 20060218
  Serious: Yes (Life-Threatening, Hospitalization)
  Sender: FDA-Public Use
  Company Number: None

PATIENT
  Age: 6 Year
  Sex: Male
  Weight: 18.3 kg

DRUGS (3)
  1. RISPERDAL [Suspect]
     Indication: AGGRESSION
     Dosage: 0.5 MG    BID   ORAL
     Route: 048
     Dates: start: 20050808, end: 20050808
  2. RISPERDAL [Suspect]
     Indication: ASPERGER'S DISORDER
     Dosage: 0.5 MG    BID   ORAL
     Route: 048
     Dates: start: 20050808, end: 20050808
  3. ADDERALL 30 [Concomitant]

REACTIONS (8)
  - ACCIDENTAL OVERDOSE [None]
  - APNOEA [None]
  - CONVULSION [None]
  - HYPONATRAEMIA [None]
  - HYPOTENSION [None]
  - INCORRECT DOSE ADMINISTERED [None]
  - MEDICATION ERROR [None]
  - PHARMACEUTICAL PRODUCT COMPLAINT [None]
